FAERS Safety Report 16028371 (Version 1)
Quarter: 2019Q1

REPORT INFORMATION
  Report Type: Spontaneous
  Country: CN (occurrence: CN)
  Receive Date: 20190304
  Receipt Date: 20190304
  Transmission Date: 20190418
  Serious: Yes (Other)
  Sender: FDA-Public Use
  Company Number: CN-ROCHE-2272574

PATIENT
  Age: 36 Year
  Sex: Female

DRUGS (6)
  1. AVASTIN [Suspect]
     Active Substance: BEVACIZUMAB
     Indication: COLON CANCER
     Dosage: 250MG DAY1
     Route: 041
     Dates: start: 20171223
  2. AVASTIN [Suspect]
     Active Substance: BEVACIZUMAB
     Indication: ADENOCARCINOMA OF COLON
     Route: 041
     Dates: start: 20140320
  3. RALTITREXED [Concomitant]
     Active Substance: RALTITREXED
     Indication: ADENOCARCINOMA OF COLON
     Dosage: 4MG DAY2
     Route: 041
     Dates: start: 20171223
  4. IRINOTECAN [Concomitant]
     Active Substance: IRINOTECAN
     Indication: ADENOCARCINOMA OF COLON
     Dosage: 240MG DAY1
     Route: 041
     Dates: start: 20171223
  5. IRINOTECAN [Concomitant]
     Active Substance: IRINOTECAN
     Indication: COLON CANCER
  6. RALTITREXED [Concomitant]
     Active Substance: RALTITREXED
     Indication: COLON CANCER

REACTIONS (5)
  - Nausea [Unknown]
  - Hepatic function abnormal [Unknown]
  - Anaemia [Unknown]
  - Asthenia [Unknown]
  - Cholinergic syndrome [Unknown]
